FAERS Safety Report 23832029 (Version 1)
Quarter: 2024Q2

REPORT INFORMATION
  Report Type: Spontaneous
  Country: CA (occurrence: CA)
  Receive Date: 20240508
  Receipt Date: 20240508
  Transmission Date: 20240716
  Serious: Yes (Other)
  Sender: FDA-Public Use
  Company Number: CA-AMGEN-CANSP2024088080

PATIENT
  Age: 78 Year
  Sex: Male

DRUGS (3)
  1. RITUXIMAB [Suspect]
     Active Substance: RITUXIMAB
     Indication: Anti-neutrophil cytoplasmic antibody positive vasculitis
     Dosage: 500 MILLIGRAM, Q6MO
     Route: 065
  2. PREDNISONE [Concomitant]
     Active Substance: PREDNISONE
     Indication: Anti-neutrophil cytoplasmic antibody positive vasculitis
     Dosage: 25 MILLIGRAM, QD
     Route: 065
  3. PREDNISONE [Concomitant]
     Active Substance: PREDNISONE
     Indication: Antifungal prophylaxis
     Dosage: 40 MILLIGRAM, QD
     Route: 065

REACTIONS (7)
  - Pneumocystis jirovecii pneumonia [Recovered/Resolved]
  - Acute kidney injury [Recovered/Resolved]
  - Off label use [Unknown]
  - Hypercalcaemia [Recovered/Resolved]
  - Blood parathyroid hormone decreased [Recovered/Resolved]
  - Blood 1,25-dihydroxycholecalciferol increased [Recovered/Resolved]
  - Blood phosphorus increased [Recovered/Resolved]
